FAERS Safety Report 9278982 (Version 2)
Quarter: 2013Q2

REPORT INFORMATION
  Report Type: Spontaneous
  Country: JP (occurrence: JP)
  Receive Date: 20130508
  Receipt Date: 20130528
  Transmission Date: 20140414
  Serious: Yes (Other)
  Sender: FDA-Public Use
  Company Number: JP-JNJFOC-20130501373

PATIENT
  Age: 90 Year
  Sex: Male

DRUGS (4)
  1. TRAMCET [Suspect]
     Indication: PAIN
     Dosage: 1 PER DAY
     Route: 048
     Dates: start: 20130404
  2. VOLTAREN [Suspect]
     Indication: PRODUCT USED FOR UNKNOWN INDICATION
     Route: 048
  3. LYRICA [Concomitant]
     Dosage: 1 PER DAY
     Route: 048
  4. PRIMPERAN [Concomitant]
     Indication: GASTRITIS
     Route: 065

REACTIONS (1)
  - Gastric ulcer [Recovered/Resolved]
